FAERS Safety Report 18488871 (Version 1)
Quarter: 2020Q4

REPORT INFORMATION
  Report Type: Spontaneous
  Country: NL (occurrence: GB)
  Receive Date: 20201111
  Receipt Date: 20201111
  Transmission Date: 20210114
  Serious: Yes (Life-Threatening)
  Sender: FDA-Public Use
  Company Number: NL-HORIZON-2020HZN00978

PATIENT
  Age: 48 Year
  Sex: Female
  Weight: 56 kg

DRUGS (2)
  1. VIMOVO [Suspect]
     Active Substance: ESOMEPRAZOLE MAGNESIUM\NAPROXEN
     Indication: PRODUCT USED FOR UNKNOWN INDICATION
     Dosage: 6.0DF UNKNOWN
     Route: 050
     Dates: start: 2016
  2. AMMONIA. [Suspect]
     Active Substance: AMMONIA
     Indication: BACTERIAL INFECTION
     Route: 050
     Dates: start: 20110803, end: 20120615

REACTIONS (17)
  - Asthenia [Unknown]
  - Haemoptysis [Unknown]
  - Eye pain [Unknown]
  - Vomiting [Not Recovered/Not Resolved]
  - Eye irritation [Unknown]
  - Headache [Unknown]
  - Anxiety [Not Recovered/Not Resolved]
  - Depression [Not Recovered/Not Resolved]
  - Dizziness [Not Recovered/Not Resolved]
  - Facial nerve disorder [Unknown]
  - Hypersensitivity [Not Recovered/Not Resolved]
  - Myalgia [Not Recovered/Not Resolved]
  - Rash [Not Recovered/Not Resolved]
  - Encephalopathy [Not Recovered/Not Resolved]
  - Cough [Not Recovered/Not Resolved]
  - Heart sounds abnormal [Unknown]
  - Chest pain [Not Recovered/Not Resolved]

NARRATIVE: CASE EVENT DATE: 20110803
